FAERS Safety Report 7900455-1 (Version None)
Quarter: 2011Q4

REPORT INFORMATION
  Report Type: 
  Country: None (occurrence: None)
  Receive Date: 20111108
  Receipt Date: 20111028
  Transmission Date: 20120403
  Serious: Yes (Hospitalization)
  Sender: FDA-Public Use
  Company Number: JP-JNJFOC-20110902262

PATIENT
  Sex: Female
  Weight: 50 kg

DRUGS (8)
  1. ROCEPHIN [Concomitant]
     Route: 041
     Dates: start: 20110701, end: 20110801
  2. PROGRAF [Suspect]
     Indication: RHEUMATOID ARTHRITIS
     Route: 048
     Dates: end: 20110825
  3. RHEUMATREX [Suspect]
     Indication: RHEUMATOID ARTHRITIS
     Dosage: 8MG/W
     Route: 048
     Dates: end: 20110825
  4. REMICADE [Suspect]
     Route: 042
     Dates: start: 20110528
  5. REMICADE [Suspect]
     Indication: RHEUMATOID ARTHRITIS
     Dosage: TOTAL NUMBER OF INFLIXIMAB DOSES WAS UNKNOWN.
     Route: 042
     Dates: start: 20110818
  6. REMICADE [Suspect]
     Route: 042
  7. PREDNISONE [Concomitant]
     Indication: RHEUMATOID ARTHRITIS
     Route: 048
     Dates: end: 20110825
  8. AZULFIDINE [Suspect]
     Indication: RHEUMATOID ARTHRITIS
     Dosage: 4 TABLETS
     Route: 048
     Dates: end: 20110825

REACTIONS (1)
  - PNEUMONIA [None]
